FAERS Safety Report 11234384 (Version 2)
Quarter: 2017Q2

REPORT INFORMATION
  Report Type: Spontaneous
  Country: US (occurrence: US)
  Receive Date: 20150702
  Receipt Date: 20170510
  Transmission Date: 20170829
  Serious: Yes (Other)
  Sender: FDA-Public Use
  Company Number: US-SUN PHARMACEUTICAL INDUSTRIES LTD-2015US-099695

PATIENT
  Age: 3 Year
  Sex: Male

DRUGS (2)
  1. MIDAZOLAM [Suspect]
     Active Substance: MIDAZOLAM HYDROCHLORIDE
     Indication: AGITATION
     Dosage: APPROXIMATELY 0.2 MG/KG/HOUR
     Route: 042
  2. FENTANYL. [Concomitant]
     Active Substance: FENTANYL
     Indication: AGITATION
     Dosage: APPROXIMATELY 4 MCG/KG/HOUR
     Route: 042

REACTIONS (1)
  - Delirium [Recovering/Resolving]
